FAERS Safety Report 8858177 (Version 1)
Quarter: 2012Q4

REPORT INFORMATION
  Report Type: 
  Country: US (occurrence: US)
  Receive Date: 20121024
  Receipt Date: 20121024
  Transmission Date: 20130627
  Serious: No
  Sender: FDA-Public Use
  Company Number: US-AMGEN-USASP2011066494

PATIENT
  Age: 55 Year
  Sex: Female
  Weight: 61.68 kg

DRUGS (10)
  1. ENBREL [Suspect]
     Indication: PRODUCT USED FOR UNKNOWN INDICATION
     Dosage: 25 mg, 2 times/wk
  2. VIVELLE                            /00045401/ [Concomitant]
     Dosage: 0.1 mg, UNK
  3. STOOL SOFTNER [Concomitant]
     Dosage: 100 mg, UNK
  4. VALTREX [Concomitant]
     Dosage: 500 mg, UNK
  5. VITAMIN C                          /00008001/ [Concomitant]
     Dosage: 250 mg, UNK
  6. MULTIVITAMIN                       /00097801/ [Concomitant]
     Dosage: UNK
  7. VITAMIN E                          /00110501/ [Concomitant]
     Dosage: 100 UNK, UNK
  8. CALCIUM [Concomitant]
     Dosage: 500 UNK, UNK
  9. GLUCOSAMINE [Concomitant]
     Dosage: 1000 mg, UNK
  10. VITAMIN D3 [Concomitant]
     Dosage: UNK

REACTIONS (3)
  - Fatigue [Unknown]
  - Nasopharyngitis [Unknown]
  - Injection site pain [Unknown]
